FAERS Safety Report 9626135 (Version 1)
Quarter: 2013Q4

REPORT INFORMATION
  Report Type: Spontaneous
  Country: IT (occurrence: IT)
  Receive Date: 20131016
  Receipt Date: 20131016
  Transmission Date: 20140711
  Serious: Yes (Hospitalization)
  Sender: FDA-Public Use
  Company Number: IT-TEVA-436336ISR

PATIENT
  Age: 22 Year
  Sex: Female

DRUGS (5)
  1. CITALOPRAM [Suspect]
     Indication: DRUG ABUSE
     Dosage: 480 MILLIGRAM DAILY;
     Route: 048
     Dates: start: 20130710, end: 20130710
  2. DELORAZEPAM [Suspect]
     Indication: DRUG ABUSE
     Dosage: 20 ML DAILY;
     Route: 048
     Dates: start: 20130710, end: 20130710
  3. LEVOPRAID 25MG [Concomitant]
  4. TRITTICO 50MG [Concomitant]
  5. VENLAFAXINA [Concomitant]

REACTIONS (2)
  - Sopor [Unknown]
  - Drug abuse [Unknown]
